FAERS Safety Report 7865558-9 (Version None)
Quarter: 2011Q4

REPORT INFORMATION
  Report Type: 
  Country: None (occurrence: None)
  Receive Date: 20111028
  Receipt Date: 20110117
  Transmission Date: 20120403
  Serious: Yes (Disabling)
  Sender: FDA-Public Use
  Company Number: US-GLAXOSMITHKLINE-A0906502A

PATIENT
  Age: 60 Year
  Sex: Female

DRUGS (6)
  1. METFORMIN HCL [Concomitant]
  2. LISINOPRIL [Concomitant]
  3. ALLOPURINOL [Concomitant]
  4. ADVAIR DISKUS 100/50 [Suspect]
     Indication: COUGH
     Dosage: 1PUFF TWICE PER DAY
     Route: 055
     Dates: start: 20110110, end: 20110114
  5. GABAPENTIN [Concomitant]
  6. SIMVASTATIN [Concomitant]

REACTIONS (1)
  - DYSPHONIA [None]
